FAERS Safety Report 14776159 (Version 3)
Quarter: 2018Q3

REPORT INFORMATION
  Report Type: Spontaneous
  Country: FR (occurrence: FR)
  Receive Date: 20180418
  Receipt Date: 20180906
  Transmission Date: 20181010
  Serious: Yes (Death)
  Sender: FDA-Public Use
  Company Number: FR-PFIZER INC-2018152566

PATIENT
  Age: 42 Year
  Sex: Female

DRUGS (3)
  1. VINCRISTINE SULFATE. [Suspect]
     Active Substance: VINCRISTINE SULFATE
     Indication: BENIGN BREAST NEOPLASM
     Dosage: 12 MG/M2, FREQ: TOTAL
  2. FLUOROURACIL. [Suspect]
     Active Substance: FLUOROURACIL
     Indication: BENIGN BREAST NEOPLASM
     Dosage: 3000 MG/M2, FREQ: TOTAL
  3. MITOXANTRONE [Suspect]
     Active Substance: MITOXANTRONE HYDROCHLORIDE
     Indication: BENIGN BREAST NEOPLASM
     Dosage: 60 MG/M2, FREQ: TOTAL

REACTIONS (2)
  - Acute promyelocytic leukaemia [Fatal]
  - Second primary malignancy [Fatal]
